FAERS Safety Report 7624349-4 (Version None)
Quarter: 2011Q3

REPORT INFORMATION
  Report Type: 
  Country: None (occurrence: None)
  Receive Date: 20110720
  Receipt Date: 20110711
  Transmission Date: 20111222
  Serious: Yes (Hospitalization)
  Sender: FDA-Public Use
  Company Number: ES-ELI_LILLY_AND_COMPANY-ES201107002903

PATIENT
  Sex: Female
  Weight: 56 kg

DRUGS (9)
  1. FORTEO [Suspect]
     Indication: OSTEOPOROSIS
     Dosage: 20 UG, QD
     Route: 058
     Dates: start: 20100301
  2. LORAZEPAM [Concomitant]
     Indication: INSOMNIA
     Dosage: 1 MG, QD
     Route: 048
  3. SERC                               /00034201/ [Concomitant]
     Dosage: 8 MG, BID
     Route: 048
  4. ASPIRIN [Concomitant]
     Indication: CARDIAC DISORDER
     Dosage: 100 MG, QD
     Route: 048
  5. MANIDON [Concomitant]
     Indication: CARDIAC DISORDER
     Dosage: UNK, QD
     Route: 048
  6. NOLOTIL [Concomitant]
     Indication: PAIN
     Dosage: UNK, QD
     Route: 048
  7. HIDROFEROL [Concomitant]
     Indication: OSTEOPOROSIS
     Dosage: 1.5 MG, QD
     Route: 048
  8. ACFOL [Concomitant]
     Dosage: UNK, QD
     Route: 048
  9. METHOTREXATE [Concomitant]
     Dosage: 2.5 MG, OTHER
     Route: 048

REACTIONS (2)
  - FALL [None]
  - HIP FRACTURE [None]
